FAERS Safety Report 7821362-9 (Version None)
Quarter: 2011Q4

REPORT INFORMATION
  Report Type: 
  Country: None (occurrence: None)
  Receive Date: 20111018
  Receipt Date: 20110303
  Transmission Date: 20120403
  Serious: No
  Sender: FDA-Public Use
  Company Number: US-ASTRAZENECA-2011SE07464

PATIENT
  Age: 71 Year
  Sex: Male
  Weight: 99.8 kg

DRUGS (15)
  1. NASONEX [Concomitant]
     Indication: MULTIPLE ALLERGIES
     Route: 045
  2. BYSTOLIC [Concomitant]
  3. FUROSEMIDE [Concomitant]
     Indication: HYPERTENSION
     Route: 048
  4. EOXAZOSIN [Concomitant]
  5. SYMBICORT [Suspect]
     Indication: ASTHMA
     Dosage: 160/4.5 MCG TWO PUFFS TWICE A DAY
     Route: 055
     Dates: start: 20090101
  6. SYMBICORT [Suspect]
     Indication: CHRONIC OBSTRUCTIVE PULMONARY DISEASE
     Dosage: 160/4.5 MCG TWO PUFFS TWICE A DAY
     Route: 055
     Dates: start: 20090101
  7. PRILOSEC [Concomitant]
  8. DILTIAZEM HCL CD [Concomitant]
     Indication: HYPERTENSION
     Route: 048
  9. LYRICA [Concomitant]
     Indication: PAIN IN EXTREMITY
     Route: 048
  10. WARFARIN SODIUM [Concomitant]
     Indication: COAGULOPATHY
     Route: 048
  11. ASPIRIN [Concomitant]
     Indication: CARDIOVASCULAR EVENT PROPHYLAXIS
     Route: 048
  12. CELEBREX [Concomitant]
     Route: 048
  13. BENAZEPRIL HYDROCHLORIDE [Concomitant]
     Indication: HYPERTENSION
  14. CLARITIN [Concomitant]
     Indication: MULTIPLE ALLERGIES
     Route: 048
  15. SIMVASTATIN [Concomitant]
     Indication: BLOOD CHOLESTEROL INCREASED

REACTIONS (1)
  - DYSPNOEA [None]
